FAERS Safety Report 14521050 (Version 2)
Quarter: 2018Q1

REPORT INFORMATION
  Report Type: Spontaneous
  Country: KR (occurrence: KR)
  Receive Date: 20180212
  Receipt Date: 20180216
  Transmission Date: 20180509
  Serious: Yes (Other)
  Sender: FDA-Public Use
  Company Number: KR-IMPAX LABORATORIES, INC-2018-IPXL-00379

PATIENT
  Age: 66 Year
  Sex: Male

DRUGS (1)
  1. DOXYCYCLINE HYCLATE DELAYED RELEASE [Suspect]
     Active Substance: DOXYCYCLINE HYCLATE
     Indication: SCRUB TYPHUS
     Dosage: 200 MG, DAILY
     Route: 065

REACTIONS (1)
  - Myelitis transverse [Recovering/Resolving]
